FAERS Safety Report 8855567 (Version 1)
Quarter: 2012Q4

REPORT INFORMATION
  Report Type: 
  Country: US (occurrence: US)
  Receive Date: 20121023
  Receipt Date: 20121023
  Transmission Date: 20130627
  Serious: No
  Sender: FDA-Public Use
  Company Number: US-AMGEN-USASP2012059532

PATIENT
  Age: 67 Year
  Sex: Female
  Weight: 58 kg

DRUGS (9)
  1. ENBREL [Suspect]
     Indication: PRODUCT USED FOR UNKNOWN INDICATION
     Dosage: 50 mg, qwk
     Route: 058
  2. METOPROLOL TARTRAS [Concomitant]
     Dosage: 50 mg, UNK
  3. OMEGA 3                            /01334101/ [Concomitant]
     Dosage: 1000 mg, UNK
  4. ESTRADIOL [Concomitant]
     Dosage: 0.037 mg, UNK
  5. BIOTIN [Concomitant]
     Dosage: 5000 UNK, UNK
  6. CALCIUM D                          /00944201/ [Concomitant]
     Dosage: UNK
  7. ALENDRONATE [Concomitant]
     Dosage: 35 mg, UNK
  8. PROVERA [Concomitant]
     Dosage: 10 mg, UNK
  9. TOBRAMYCIN [Concomitant]
     Dosage: 0.3 %, UNK

REACTIONS (1)
  - Conjunctivitis [Unknown]
